FAERS Safety Report 20725820 (Version 1)
Quarter: 2022Q2

REPORT INFORMATION
  Report Type: Spontaneous
  Country: US (occurrence: None)
  Receive Date: 20220419
  Receipt Date: 20220419
  Transmission Date: 20220721
  Serious: Yes (Hospitalization)
  Sender: FDA-Public Use
  Company Number: None

PATIENT
  Age: 68 Year
  Sex: Female
  Weight: 67.5 kg

DRUGS (8)
  1. RINVOQ [Suspect]
     Active Substance: UPADACITINIB
     Indication: Rheumatoid arthritis
     Dosage: OTHER QUANTITY : 1 TABLET(S);?FREQUENCY : DAILY;?
     Route: 048
  2. SERTRALINE [Concomitant]
     Active Substance: SERTRALINE HYDROCHLORIDE
  3. ATORVASTATIN [Concomitant]
     Active Substance: ATORVASTATIN
  4. MYRBETRIQ [Concomitant]
     Active Substance: MIRABEGRON
  5. PREDNISONE [Concomitant]
     Active Substance: PREDNISONE
  6. FLORINEF ACETATE [Concomitant]
     Active Substance: FLUDROCORTISONE ACETATE
  7. MELATONIN [Concomitant]
     Active Substance: MELATONIN
  8. TYLENOL [Concomitant]
     Active Substance: ACETAMINOPHEN

REACTIONS (15)
  - Throat irritation [None]
  - Cough [None]
  - Drug ineffective [None]
  - Feeling abnormal [None]
  - Rhinorrhoea [None]
  - Headache [None]
  - Pyrexia [None]
  - Oropharyngeal pain [None]
  - Thinking abnormal [None]
  - Dizziness [None]
  - Headache [None]
  - Pain [None]
  - Nausea [None]
  - Nonspecific reaction [None]
  - Stomatitis [None]

NARRATIVE: CASE EVENT DATE: 20220415
